FAERS Safety Report 8438681-8 (Version None)
Quarter: 2012Q2

REPORT INFORMATION
  Report Type: 
  Country: None (occurrence: None)
  Receive Date: 20120611
  Receipt Date: 20120611
  Transmission Date: 20120825
  Serious: No
  Sender: FDA-Public Use
  Company Number: None

PATIENT
  Age: 34 Year
  Sex: Male
  Weight: 63.5036 kg

DRUGS (1)
  1. PROPECIA [Suspect]
     Indication: ALOPECIA
     Dosage: 1 TABLET PER DAY 1 PER DAY PO
     Route: 048
     Dates: start: 20111216, end: 20111217

REACTIONS (13)
  - SEXUAL DYSFUNCTION [None]
  - AGITATION [None]
  - DEPRESSION [None]
  - UNEVALUABLE EVENT [None]
  - DISTURBANCE IN ATTENTION [None]
  - EMOTIONAL DISORDER [None]
  - LISTLESS [None]
  - MENTAL DISORDER [None]
  - FEELING ABNORMAL [None]
  - DEPRESSED MOOD [None]
  - INSOMNIA [None]
  - SUICIDAL IDEATION [None]
  - RESTLESSNESS [None]
